FAERS Safety Report 10783246 (Version 3)
Quarter: 2015Q1

REPORT INFORMATION
  Report Type: Spontaneous
  Country: US (occurrence: US)
  Receive Date: 20150210
  Receipt Date: 20150319
  Transmission Date: 20150721
  Serious: Yes (Death, Hospitalization)
  Sender: FDA-Public Use
  Company Number: US-ASTELLAS-2014US017363

PATIENT
  Age: 86 Year
  Sex: Male

DRUGS (1)
  1. XTANDI [Suspect]
     Active Substance: ENZALUTAMIDE
     Indication: PROSTATE CANCER METASTATIC
     Route: 065
     Dates: start: 20140805, end: 201411

REACTIONS (3)
  - Urinary tract infection [Unknown]
  - Hospitalisation [Unknown]
  - Cardiac failure [Fatal]

NARRATIVE: CASE EVENT DATE: 20150220
